FAERS Safety Report 4734451-2 (Version None)
Quarter: 2005Q3

REPORT INFORMATION
  Report Type: 
  Country: None (occurrence: None)
  Receive Date: 20050804
  Receipt Date: 20050725
  Transmission Date: 20060218
  Serious: Yes (Life-Threatening)
  Sender: FDA-Public Use
  Company Number: DE-ROCHE-411637

PATIENT
  Age: 46 Year
  Sex: Male

DRUGS (2)
  1. MYCOPHENOLATE MOFETIL [Suspect]
     Route: 048
     Dates: start: 20050605
  2. FK506 [Suspect]
     Route: 048
     Dates: start: 20050605, end: 20050618

REACTIONS (2)
  - CARDIAC DISORDER [None]
  - RESPIRATORY FAILURE [None]
